FAERS Safety Report 8467375-8 (Version None)
Quarter: 2012Q2

REPORT INFORMATION
  Report Type: 
  Country: None (occurrence: None)
  Receive Date: 20120626
  Receipt Date: 20120611
  Transmission Date: 20120825
  Serious: Yes (Hospitalization)
  Sender: FDA-Public Use
  Company Number: US-WATSON-2012-10229

PATIENT
  Sex: Female

DRUGS (1)
  1. POTASSIUM CHLORIDE EXTENDED-RELEASE (WATSON LABORATORIES) [Suspect]
     Indication: BLOOD POTASSIUM DECREASED
     Dosage: 40 MEQ, TID
     Route: 048

REACTIONS (2)
  - MUSCLE SPASMS [None]
  - BLOOD POTASSIUM INCREASED [None]
